FAERS Safety Report 4675766-6 (Version None)
Quarter: 2005Q2

REPORT INFORMATION
  Report Type: 
  Country: None (occurrence: None)
  Receive Date: 20050527
  Receipt Date: 20050407
  Transmission Date: 20051028
  Serious: Yes (Other)
  Sender: FDA-Public Use
  Company Number: US-BRISTOL-MYERS SQUIBB COMPANY-12928990

PATIENT
  Age: 7 Decade
  Sex: Female

DRUGS (5)
  1. ERBITUX [Suspect]
     Dosage: LOADING DOSE (400 MG), INFUSION TERMINATED.
     Route: 042
     Dates: start: 20050101, end: 20050101
  2. IRINOTECAN [Concomitant]
     Dates: start: 20050101, end: 20050101
  3. DECADRON [Concomitant]
     Indication: PREMEDICATION
     Dates: start: 20050101, end: 20050101
  4. ZOFRAN [Concomitant]
     Indication: PREMEDICATION
     Dates: start: 20050101, end: 20050101
  5. BENADRYL [Concomitant]
     Indication: PREMEDICATION
     Route: 042
     Dates: start: 20050101, end: 20050101

REACTIONS (1)
  - INFUSION RELATED REACTION [None]
